FAERS Safety Report 17844842 (Version 1)
Quarter: 2020Q2

REPORT INFORMATION
  Report Type: Spontaneous
  Country: CA (occurrence: CA)
  Receive Date: 20200601
  Receipt Date: 20200601
  Transmission Date: 20200714
  Serious: Yes (Other)
  Sender: FDA-Public Use
  Company Number: CA-ROCHE-2606294

PATIENT
  Age: 60 Year
  Sex: Female

DRUGS (11)
  1. APO-LEFLUNOMIDE [Suspect]
     Active Substance: LEFLUNOMIDE
     Indication: PRODUCT USED FOR UNKNOWN INDICATION
     Route: 048
  2. SIMPONI [Suspect]
     Active Substance: GOLIMUMAB
     Indication: PRODUCT USED FOR UNKNOWN INDICATION
     Route: 065
  3. XELJANZ [Concomitant]
     Active Substance: TOFACITINIB CITRATE
     Indication: RHEUMATOID ARTHRITIS
     Route: 048
  4. LEFLUNOMIDE. [Suspect]
     Active Substance: LEFLUNOMIDE
     Indication: PRODUCT USED FOR UNKNOWN INDICATION
     Route: 048
  5. SIMPONI [Suspect]
     Active Substance: GOLIMUMAB
     Route: 058
  6. CELEBREX [Concomitant]
     Active Substance: CELECOXIB
     Indication: RHEUMATOID ARTHRITIS
     Route: 048
  7. PREDNISONE. [Concomitant]
     Active Substance: PREDNISONE
     Indication: RHEUMATOID ARTHRITIS
     Route: 065
  8. APO-LEFLUNOMIDE [Suspect]
     Active Substance: LEFLUNOMIDE
     Route: 065
  9. ENBREL [Suspect]
     Active Substance: ETANERCEPT
     Indication: RHEUMATOID ARTHRITIS
     Route: 065
  10. ACTEMRA [Suspect]
     Active Substance: TOCILIZUMAB
     Indication: PRODUCT USED FOR UNKNOWN INDICATION
     Route: 065
  11. METHOTREXATE. [Suspect]
     Active Substance: METHOTREXATE
     Indication: RHEUMATOID ARTHRITIS
     Route: 065

REACTIONS (8)
  - Breast cyst [Unknown]
  - Hypertension [Unknown]
  - Drug intolerance [Unknown]
  - Hypercholesterolaemia [Unknown]
  - Musculoskeletal stiffness [Unknown]
  - Drug ineffective [Unknown]
  - Gait disturbance [Unknown]
  - Impaired healing [Unknown]
